FAERS Safety Report 7466710-7 (Version None)
Quarter: 2011Q2

REPORT INFORMATION
  Report Type: 
  Country: None (occurrence: None)
  Receive Date: 20110509
  Receipt Date: 20100823
  Transmission Date: 20111010
  Serious: No
  Sender: FDA-Public Use
  Company Number: US-ALEXION-A201001063

PATIENT
  Sex: Male

DRUGS (6)
  1. SOLIRIS [Suspect]
     Dosage: 1200 MG, Q2W
     Route: 042
     Dates: start: 20100101
  2. DANAZOL [Concomitant]
     Dosage: UNK
     Route: 048
  3. SOLIRIS [Suspect]
     Dosage: 900 MG, Q2W
     Route: 042
     Dates: start: 20090304, end: 20100101
  4. COUMADIN [Concomitant]
     Dosage: UNK
     Route: 048
  5. SOLIRIS [Suspect]
     Indication: PAROXYSMAL NOCTURNAL HAEMOGLOBINURIA
     Dosage: 600 MG, QW
     Route: 042
     Dates: start: 20090204, end: 20090225
  6. PREDNISONE [Concomitant]
     Dosage: UNK
     Route: 048

REACTIONS (5)
  - BLOOD LACTATE DEHYDROGENASE INCREASED [None]
  - ECZEMA [None]
  - SKIN HAEMORRHAGE [None]
  - DRY SKIN [None]
  - FATIGUE [None]
